FAERS Safety Report 6062484-5 (Version None)
Quarter: 2009Q1

REPORT INFORMATION
  Report Type: 
  Country: None (occurrence: None)
  Receive Date: 20090202
  Receipt Date: 20090202
  Transmission Date: 20090719
  Serious: Yes (Life-Threatening, Other)
  Sender: FDA-Public Use
  Company Number: None

PATIENT
  Age: 24 Year
  Sex: Male
  Weight: 70.3075 kg

DRUGS (1)
  1. HALDOL [Suspect]
     Dosage: 5MG MORNING IM
     Route: 030
     Dates: start: 20090125, end: 20090201

REACTIONS (11)
  - CONVULSION [None]
  - DOCUMENTED HYPERSENSITIVITY TO ADMINISTERED DRUG [None]
  - EAR HAEMORRHAGE [None]
  - ERYTHEMA [None]
  - MOVEMENT DISORDER [None]
  - MYDRIASIS [None]
  - OCULAR ICTERUS [None]
  - SALIVARY HYPERSECRETION [None]
  - SPEECH DISORDER [None]
  - TREMOR [None]
  - WEIGHT INCREASED [None]
